FAERS Safety Report 8300361-7 (Version None)
Quarter: 2012Q2

REPORT INFORMATION
  Report Type: 
  Country: None (occurrence: None)
  Receive Date: 20120420
  Receipt Date: 20120409
  Transmission Date: 20120825
  Serious: Yes (Other)
  Sender: FDA-Public Use
  Company Number: US-PERRIGO-12US003029

PATIENT
  Age: 53 Year
  Sex: Female

DRUGS (2)
  1. DIHYDROERGOTAMINE MESYLATE RX 1 MG/ML 9V8 [Suspect]
     Indication: MIGRAINE
     Dosage: UNK
     Route: 065
  2. METHYSERGIDE [Suspect]
     Indication: MIGRAINE
     Dosage: UNK
     Route: 065

REACTIONS (9)
  - CARDIAC MURMUR [None]
  - CARDIAC MYXOMA [None]
  - TRICUSPID VALVE INCOMPETENCE [None]
  - CARDIAC VALVE DISEASE [None]
  - RIGHT ATRIAL DILATATION [None]
  - ORTHOPNOEA [None]
  - DYSPNOEA EXERTIONAL [None]
  - MITRAL VALVE INCOMPETENCE [None]
  - PALPITATIONS [None]
